FAERS Safety Report 9304973 (Version 2)
Quarter: 2013Q3

REPORT INFORMATION
  Report Type: Spontaneous
  Country: CN (occurrence: CN)
  Receive Date: 20130523
  Receipt Date: 20130719
  Transmission Date: 20140515
  Serious: Yes (Other)
  Sender: FDA-Public Use
  Company Number: CN-GENZYME-CERZ-1002953

PATIENT
  Sex: Male
  Weight: 63 kg

DRUGS (3)
  1. CEREZYME [Suspect]
     Indication: GAUCHER^S DISEASE
     Dosage: UNK
     Route: 042
     Dates: start: 200909
  2. CEREZYME [Suspect]
     Dosage: 19.04 U/KG, Q2W
     Route: 042
     Dates: start: 20130426
  3. TRAMADOL [Concomitant]
     Indication: PAIN
     Dosage: UNK
     Route: 041
     Dates: start: 201304

REACTIONS (1)
  - Osteonecrosis [Not Recovered/Not Resolved]
